FAERS Safety Report 6594162-8 (Version None)
Quarter: 2010Q1

REPORT INFORMATION
  Report Type: 
  Country: None (occurrence: None)
  Receive Date: 20100222
  Receipt Date: 20100211
  Transmission Date: 20100710
  Serious: Yes (Hospitalization, Other)
  Sender: FDA-Public Use
  Company Number: DE-JNJFOC-20070107583

PATIENT
  Age: 68 Year
  Sex: Female

DRUGS (22)
  1. REMICADE [Suspect]
     Indication: RHEUMATOID ARTHRITIS
     Route: 042
  2. REMICADE [Suspect]
     Route: 042
  3. REMICADE [Suspect]
     Route: 042
  4. REMICADE [Suspect]
     Route: 042
  5. REMICADE [Suspect]
     Route: 042
  6. REMICADE [Suspect]
     Route: 042
  7. REMICADE [Suspect]
     Route: 042
  8. REMICADE [Suspect]
     Route: 042
  9. REMICADE [Suspect]
     Route: 042
  10. REMICADE [Suspect]
     Route: 042
  11. REMICADE [Suspect]
     Route: 042
  12. REMICADE [Suspect]
     Route: 042
  13. REMICADE [Suspect]
     Route: 042
  14. REMICADE [Suspect]
     Route: 042
  15. REMICADE [Suspect]
     Route: 042
  16. METHOTREXATE [Suspect]
     Indication: RHEUMATOID ARTHRITIS
     Route: 065
  17. METHOTREXATE [Suspect]
     Route: 065
  18. METHOTREXATE [Suspect]
     Route: 065
  19. METHOTREXATE [Suspect]
     Route: 065
  20. METHOTREXATE [Suspect]
     Route: 065
  21. DECORTIN -H [Suspect]
     Indication: DRUG USE FOR UNKNOWN INDICATION
  22. FOLSAN [Concomitant]

REACTIONS (10)
  - BILE DUCT STONE [None]
  - CERVICOGENIC HEADACHE [None]
  - CHOLELITHIASIS [None]
  - CUBITAL TUNNEL SYNDROME [None]
  - DISLOCATION OF VERTEBRA [None]
  - GASTROENTERITIS NOROVIRUS [None]
  - HYPOKALAEMIA [None]
  - PERIPHERAL NERVE OPERATION [None]
  - PROCEDURAL HEADACHE [None]
  - UPPER LIMB FRACTURE [None]
